FAERS Safety Report 18973408 (Version 1)
Quarter: 2021Q1

REPORT INFORMATION
  Report Type: Spontaneous
  Country: US (occurrence: US)
  Receive Date: 20210305
  Receipt Date: 20210305
  Transmission Date: 20210420
  Serious: Yes (Life-Threatening, Hospitalization)
  Sender: FDA-Public Use
  Company Number: None

PATIENT
  Age: 64 Year
  Sex: Male
  Weight: 99 kg

DRUGS (9)
  1. GLYXAMBI [Suspect]
     Active Substance: EMPAGLIFLOZIN\LINAGLIPTIN
     Indication: BLOOD GLUCOSE INCREASED
     Dosage: ?          QUANTITY:1 CAPSULE(S);?
     Route: 048
     Dates: start: 20201215, end: 20201220
  2. GLYXAMBI [Suspect]
     Active Substance: EMPAGLIFLOZIN\LINAGLIPTIN
     Indication: DIABETES MELLITUS
     Dosage: ?          QUANTITY:1 CAPSULE(S);?
     Route: 048
     Dates: start: 20201215, end: 20201220
  3. GABAPENTIN. [Concomitant]
     Active Substance: GABAPENTIN
  4. FISH OIL [Concomitant]
     Active Substance: FISH OIL
  5. INSULIN [Concomitant]
     Active Substance: INSULIN NOS
  6. ROSUVASTATIN. [Concomitant]
     Active Substance: ROSUVASTATIN
  7. METFORM ER [Concomitant]
  8. LISINOPRIL. [Concomitant]
     Active Substance: LISINOPRIL
  9. MULTIVITAMIN CENTRUM SILVER [Concomitant]

REACTIONS (2)
  - Ketoacidosis [None]
  - Vomiting [None]

NARRATIVE: CASE EVENT DATE: 20201221
